FAERS Safety Report 9735572 (Version 1)
Quarter: 2013Q4

REPORT INFORMATION
  Report Type: Spontaneous
  Country: US (occurrence: US)
  Receive Date: 20131206
  Receipt Date: 20131206
  Transmission Date: 20140711
  Serious: No
  Sender: FDA-Public Use
  Company Number: US-GILEAD-2009-0023961

PATIENT
  Sex: Female

DRUGS (12)
  1. LETAIRIS [Suspect]
     Indication: PULMONARY ARTERIAL HYPERTENSION
     Route: 048
     Dates: start: 20070110
  2. ACTONEL [Concomitant]
     Indication: OSTEOPOROSIS
  3. CALCIUM 600+D [Concomitant]
     Indication: OSTEOPOROSIS
  4. NEXIUM [Concomitant]
     Indication: GASTROOESOPHAGEAL REFLUX DISEASE
  5. COUMADIN [Concomitant]
  6. MULTIVITAMINS [Concomitant]
  7. REVATIO [Concomitant]
     Indication: PULMONARY ARTERIAL HYPERTENSION
  8. DILTIAZEM CD [Concomitant]
  9. POTASSIUM CHLORIDE [Concomitant]
     Indication: ELECTROLYTE IMBALANCE
  10. FUROSEMIDE [Concomitant]
     Indication: FLUID RETENTION
  11. CELLCEPT [Concomitant]
  12. LUPRON DEPOT [Concomitant]

REACTIONS (4)
  - Nausea [Recovered/Resolved]
  - Dizziness [Recovered/Resolved]
  - Palpitations [Recovered/Resolved]
  - Flushing [Recovered/Resolved]
